FAERS Safety Report 23380232 (Version 1)
Quarter: 2024Q1

REPORT INFORMATION
  Report Type: Other
  Country: CN (occurrence: None)
  Receive Date: 20240109
  Receipt Date: 20240109
  Transmission Date: 20240410
  Serious: Yes (Death)
  Sender: FDA-Public Use
  Company Number: CN-ROCHE-3486502

PATIENT
  Age: 29 Year
  Sex: Male
  Weight: 53 kg

DRUGS (1)
  1. POLIVY [Suspect]
     Active Substance: POLATUZUMAB VEDOTIN-PIIQ
     Indication: Diffuse large B-cell lymphoma
     Dosage: LYOPHILIZED DOSAGE FORM, 30 MG PER VIAL, INTRAVENOUS FLUIDS
     Route: 042
     Dates: start: 20230609, end: 20231012

REACTIONS (1)
  - Organ failure [Fatal]

NARRATIVE: CASE EVENT DATE: 20231201
